FAERS Safety Report 15696826 (Version 1)
Quarter: 2018Q4

REPORT INFORMATION
  Report Type: Spontaneous
  Country: US (occurrence: US)
  Receive Date: 20181206
  Receipt Date: 20181206
  Transmission Date: 20190205
  Serious: No
  Sender: FDA-Public Use
  Company Number: US-PFIZER INC-2018492672

PATIENT

DRUGS (1)
  1. METHOTREXATE SODIUM. [Suspect]
     Active Substance: METHOTREXATE SODIUM
     Indication: BEHCET^S SYNDROME
     Dosage: UNK

REACTIONS (2)
  - Drug effective for unapproved indication [Unknown]
  - Toxicity to various agents [Not Recovered/Not Resolved]
